FAERS Safety Report 20016283 (Version 1)
Quarter: 2021Q4

REPORT INFORMATION
  Report Type: Spontaneous
  Country: US (occurrence: None)
  Receive Date: 20211103
  Receipt Date: 20211103
  Transmission Date: 20220303
  Serious: Yes (Other)
  Sender: FDA-Public Use
  Company Number: None

PATIENT
  Age: 59 Year
  Sex: Female
  Weight: 47.5 kg

DRUGS (1)
  1. ERBITUX [Suspect]
     Active Substance: CETUXIMAB
     Indication: Colon cancer
     Dosage: FREQUENCY : WEEKLY;?
     Route: 042

REACTIONS (3)
  - Chest discomfort [None]
  - Chills [None]
  - Chills [None]

NARRATIVE: CASE EVENT DATE: 20211015
